FAERS Safety Report 5594168-1 (Version None)
Quarter: 2008Q1

REPORT INFORMATION
  Report Type: 
  Country: None (occurrence: None)
  Receive Date: 20080115
  Receipt Date: 20080103
  Transmission Date: 20080703
  Serious: Yes (Other)
  Sender: FDA-Public Use
  Company Number: S08-USA-00024-01

PATIENT
  Age: 27 Year
  Sex: Female
  Weight: 99.7913 kg

DRUGS (11)
  1. DILTIAZEM HCL [Suspect]
  2. REBIF [Suspect]
     Indication: MULTIPLE SCLEROSIS
     Dosage: 44 MCG TIW
     Dates: start: 20060306, end: 20070901
  3. REBIF [Suspect]
     Indication: MULTIPLE SCLEROSIS
     Dosage: 44 MCG TIW
     Dates: start: 20071101
  4. KLONOPIN [Suspect]
     Indication: ANXIETY
  5. ATENOLOL [Concomitant]
  6. FUROSEMIDE [Suspect]
  7. ANGIOTENSIN RECEPTOR ANTAGONIST [Suspect]
  8. MYCOPHENOLATE MOFETIL [Concomitant]
  9. PREDNISONE TAB [Concomitant]
  10. ASPIRIN [Concomitant]
  11. INSULIN [Concomitant]

REACTIONS (4)
  - ABORTION SPONTANEOUS [None]
  - DRUG EXPOSURE DURING PREGNANCY [None]
  - MULTIPLE SCLEROSIS [None]
  - PREGNANCY [None]
